FAERS Safety Report 24466419 (Version 2)
Quarter: 2024Q4

REPORT INFORMATION
  Report Type: Report from Study
  Country: JP (occurrence: JP)
  Receive Date: 20241018
  Receipt Date: 20241122
  Transmission Date: 20250115
  Serious: Yes (Death, Hospitalization)
  Sender: PFIZER
  Company Number: JP-PFIZER INC-202400204917

PATIENT
  Age: 77 Year
  Sex: Male
  Weight: 54 kg

DRUGS (21)
  1. ELRANATAMAB [Suspect]
     Active Substance: ELRANATAMAB
     Indication: Plasma cell myeloma
     Dosage: 12 MG, 1X/DAY
     Route: 058
     Dates: start: 20240617, end: 20240617
  2. ELRANATAMAB [Suspect]
     Active Substance: ELRANATAMAB
     Dosage: 32 MG, 1X/DAY
     Route: 058
     Dates: start: 20240620, end: 20240620
  3. ELRANATAMAB [Suspect]
     Active Substance: ELRANATAMAB
     Dosage: 76 MG
     Route: 058
  4. VALACYCLOVIR HYDROCHLORIDE [Concomitant]
     Active Substance: VALACYCLOVIR HYDROCHLORIDE
     Indication: Infection prophylaxis
     Dosage: 500 MG/DAY 3 TIMES A WEEK
  5. SULFAMETHOXAZOLE\TRIMETHOPRIM [Concomitant]
     Active Substance: SULFAMETHOXAZOLE\TRIMETHOPRIM
     Indication: Infection prophylaxis
     Dosage: 1 DF/DAY 3 TIMES A WEEK
  6. PREGABALIN [Concomitant]
     Active Substance: PREGABALIN
     Indication: Pain
     Dosage: 150 MG, DAILY
  7. AZILSARTAN KAMEDOXOMIL [Concomitant]
     Active Substance: AZILSARTAN KAMEDOXOMIL
     Indication: Hypertension
     Dosage: 40 MG, DAILY
  8. AMLODIPINE BESYLATE [Concomitant]
     Active Substance: AMLODIPINE BESYLATE
     Indication: Hypertension
     Dosage: 10 MG, DAILY
  9. ESOMEPRAZOLE MAGNESIUM [Concomitant]
     Active Substance: ESOMEPRAZOLE MAGNESIUM
     Indication: Gastrooesophageal reflux disease
     Dosage: 20 MG, DAILY
  10. TAMSULOSIN HYDROCHLORIDE [Concomitant]
     Active Substance: TAMSULOSIN HYDROCHLORIDE
     Indication: Benign prostatic hyperplasia
     Dosage: 0.2 MG, DAILY
  11. CILNIDIPINE [Concomitant]
     Active Substance: CILNIDIPINE
     Indication: Hypertension
     Dosage: 10 MG, DAILY
  12. BISOPROLOL FUMARATE [Concomitant]
     Active Substance: BISOPROLOL FUMARATE
     Indication: Hypertension
     Dosage: 0.625 MG, DAILY
  13. BROTIZOLAM [Concomitant]
     Active Substance: BROTIZOLAM
     Indication: Insomnia
     Dosage: 0.25 MG, DAILY
  14. ZOLPIDEM [Concomitant]
     Active Substance: ZOLPIDEM TARTRATE
     Indication: Insomnia
     Dosage: 2.5 MG, DAILY
  15. VIBEGRON [Concomitant]
     Active Substance: VIBEGRON
     Indication: Pollakiuria
     Dosage: 50 MG, DAILY
  16. CLONAZEPAM [Concomitant]
     Active Substance: CLONAZEPAM
     Dosage: 0.5 MG, DAILY
  17. MAGNESIUM OXIDE [Concomitant]
     Active Substance: MAGNESIUM OXIDE
     Dosage: 990 MG, DAILY
  18. DEXAMETHASONE [Concomitant]
     Active Substance: DEXAMETHASONE
     Indication: Premedication
     Dosage: 20 MG
  19. EPINASTINE [Concomitant]
     Active Substance: EPINASTINE
     Indication: Premedication
     Dosage: UNK
  20. LOXOPROFEN [Concomitant]
     Active Substance: LOXOPROFEN
     Indication: Premedication
     Dosage: UNK
  21. DEXAMETHASONE [Concomitant]
     Active Substance: DEXAMETHASONE
     Indication: Premedication
     Dosage: UNK

REACTIONS (7)
  - Neoplasm progression [Fatal]
  - Immune effector cell-associated neurotoxicity syndrome [Recovering/Resolving]
  - Cytokine release syndrome [Recovering/Resolving]
  - Parkinsonism [Recovered/Resolved]
  - Chest X-ray abnormal [Unknown]
  - Computerised tomogram thorax abnormal [Unknown]
  - White blood cell count abnormal [Unknown]

NARRATIVE: CASE EVENT DATE: 20240624
